FAERS Safety Report 5077946-7 (Version None)
Quarter: 2006Q3

REPORT INFORMATION
  Report Type: 
  Country: None (occurrence: None)
  Receive Date: 20060808
  Receipt Date: 20060725
  Transmission Date: 20061208
  Serious: Yes (Hospitalization)
  Sender: FDA-Public Use
  Company Number: E3810-00080-SPO-FR

PATIENT
  Age: 79 Year
  Sex: Female

DRUGS (5)
  1. RABEPRAZOLE SODIUM [Suspect]
     Indication: OESOPHAGITIS
     Dosage: 20 MG, ORAL
     Route: 048
     Dates: start: 20010101
  2. ASPIRIN [Concomitant]
  3. LASIX [Concomitant]
  4. TENORMIN [Concomitant]
  5. RANITIDINE [Concomitant]

REACTIONS (7)
  - BLOOD CHROMOGRANIN A INCREASED [None]
  - BLOOD GASTRIN INCREASED [None]
  - DYSPEPSIA [None]
  - FLUSHING [None]
  - HYPERTENSION [None]
  - MALAISE [None]
  - SENSE OF OPPRESSION [None]
